FAERS Safety Report 7672513-0 (Version None)
Quarter: 2011Q3

REPORT INFORMATION
  Report Type: 
  Country: None (occurrence: None)
  Receive Date: 20110809
  Receipt Date: 20110725
  Transmission Date: 20111222
  Serious: Yes (Hospitalization)
  Sender: FDA-Public Use
  Company Number: IT-WATSON-2011-12149

PATIENT
  Age: 62 Year
  Sex: Female

DRUGS (3)
  1. DISULFIRAM [Suspect]
     Indication: ALCOHOLISM
     Dosage: 400 MG, DAILY
  2. DIVALPROEX SODIUM [Suspect]
     Indication: AFFECTIVE DISORDER
     Dosage: 500 MG, BID
  3. SODIUM OXYBATE [Suspect]
     Indication: ALCOHOLISM
     Dosage: 46 MG/KG/DAY (3500 MG, DAILY)

REACTIONS (4)
  - PSYCHOTIC BEHAVIOUR [None]
  - DRUG INTERACTION [None]
  - CONVULSION [None]
  - HYPOMANIA [None]
